FAERS Safety Report 26198198 (Version 1)
Quarter: 2025Q4

REPORT INFORMATION
  Report Type: Spontaneous
  Country: US (occurrence: US)
  Receive Date: 20251224
  Receipt Date: 20251224
  Transmission Date: 20260117
  Serious: Yes (Hospitalization)
  Sender: FRESENIUS MEDICAL CARE
  Company Number: US-FMCRTG-FMC-2512-002043

PATIENT
  Age: 56 Year
  Sex: Male
  Weight: 95 kg

DRUGS (2)
  1. DELFLEX WITH DEXTROSE 1.5% LOW MAGNESIUM LOW CALCIUM [Suspect]
     Active Substance: CALCIUM CHLORIDE\DEXTROSE\MAGNESIUM CHLORIDE\SODIUM CHLORIDE\SODIUM LACTATE
     Indication: End stage renal disease
     Dosage: CCPD WITH 4 CYCLES OF 2400ML, A DAYTIME MANUAL EXCHANGE OF 2000ML, AND A LAST FILL OF 2000ML.
     Route: 033
  2. DELFLEX WITH DEXTROSE 2.5% LOW MAGNESIUM LOW CALCIUM [Suspect]
     Active Substance: CALCIUM CHLORIDE\DEXTROSE\MAGNESIUM CHLORIDE\SODIUM CHLORIDE\SODIUM LACTATE
     Indication: End stage renal disease
     Dosage: CCPD WITH 4 CYCLES OF 2400ML, A DAYTIME MANUAL EXCHANGE OF 2000ML, AND A LAST FILL OF 2000ML.
     Route: 033

REACTIONS (2)
  - Pulmonary oedema [Recovering/Resolving]
  - Pleuroperitoneal communication [Unknown]

NARRATIVE: CASE EVENT DATE: 20251208
